FAERS Safety Report 24462990 (Version 2)
Quarter: 2025Q2

REPORT INFORMATION
  Report Type: Spontaneous
  Country: CN (occurrence: CN)
  Receive Date: 20241018
  Receipt Date: 20250608
  Transmission Date: 20250716
  Serious: Yes (Other)
  Sender: COHERUS
  Company Number: CN-SHANGHAI JUNSHI BIOSCIENCES CO., LTD.-CN2024011615

PATIENT

DRUGS (4)
  1. TORIPALIMAB [Suspect]
     Active Substance: TORIPALIMAB
     Indication: Penile cancer
     Dosage: 240 MG, EVERY 21 DAYS
     Route: 041
     Dates: start: 20241009, end: 20241010
  2. IFOSFAMIDE [Suspect]
     Active Substance: IFOSFAMIDE
     Indication: Penile cancer
     Dosage: 2.1 G,QD
     Route: 041
     Dates: start: 20241009, end: 20241010
  3. PACLITAXEL [Suspect]
     Active Substance: PACLITAXEL
     Indication: Penile cancer
     Route: 041
     Dates: start: 20241009, end: 20241010
  4. CISPLATIN [Suspect]
     Active Substance: CISPLATIN
     Indication: Penile cancer
     Dosage: 45 MG,QD
     Route: 041
     Dates: start: 20241009, end: 20241010

REACTIONS (3)
  - Erythema [Recovering/Resolving]
  - Chills [Recovering/Resolving]
  - Pyrexia [Recovering/Resolving]

NARRATIVE: CASE EVENT DATE: 20241010
